FAERS Safety Report 18866451 (Version 1)
Quarter: 2021Q1

REPORT INFORMATION
  Report Type: Spontaneous
  Country: US (occurrence: US)
  Receive Date: 20210208
  Receipt Date: 20210208
  Transmission Date: 20210420
  Serious: No
  Sender: FDA-Public Use
  Company Number: US-INCYTE CORPORATION-2021IN000961

PATIENT

DRUGS (3)
  1. JAKAFI [Suspect]
     Active Substance: RUXOLITINIB
     Indication: MYELOPROLIFERATIVE NEOPLASM
  2. JAKAFI [Suspect]
     Active Substance: RUXOLITINIB
     Indication: THROMBOCYTOPENIA
     Dosage: 5 MILLIGRAM, BID
     Route: 048
     Dates: start: 20201022
  3. JAKAFI [Suspect]
     Active Substance: RUXOLITINIB
     Indication: SPLENOMEGALY

REACTIONS (5)
  - Off label use [Unknown]
  - Flatulence [Unknown]
  - Constipation [Unknown]
  - Faecal volume increased [Unknown]
  - Abdominal distension [Unknown]

NARRATIVE: CASE EVENT DATE: 20201022
